FAERS Safety Report 5225151-3 (Version None)
Quarter: 2007Q1

REPORT INFORMATION
  Report Type: 
  Country: None (occurrence: None)
  Receive Date: 20070129
  Receipt Date: 20070119
  Transmission Date: 20070707
  Serious: Yes (Disabling)
  Sender: FDA-Public Use
  Company Number: 2007BI001394

PATIENT
  Age: 62 Year
  Sex: Male
  Weight: 96 kg

DRUGS (8)
  1. AVONEX [Suspect]
     Indication: MULTIPLE SCLEROSIS
     Dosage: 30 UG; QW; IM
     Route: 030
     Dates: start: 20020101, end: 20030901
  2. AVONEX [Suspect]
     Indication: MULTIPLE SCLEROSIS
     Dosage: 30 UG; QW; IM
     Route: 030
     Dates: start: 20030901
  3. METOPROLOL SUCCINATE [Concomitant]
  4. BAYMYCARD RR [Concomitant]
  5. RAMIPRIL [Concomitant]
  6. ASPIRIN [Concomitant]
  7. FOSMAX [Concomitant]
  8. SIMVASTATIN [Concomitant]

REACTIONS (2)
  - ABASIA [None]
  - INFLUENZA LIKE ILLNESS [None]
